FAERS Safety Report 6774778-6 (Version None)
Quarter: 2010Q2

REPORT INFORMATION
  Report Type: 
  Country: None (occurrence: None)
  Receive Date: 20100617
  Receipt Date: 20100609
  Transmission Date: 20101027
  Serious: Yes (Hospitalization)
  Sender: FDA-Public Use
  Company Number: CH-ROCHE-708465

PATIENT
  Age: 33 Year
  Sex: Female

DRUGS (3)
  1. VALIUM [Suspect]
     Indication: DRUG USE FOR UNKNOWN INDICATION
     Dosage: STRENGTH: UNKNOWN,FREQUENCY: 20 TABLETS ONE PER TOTAL
     Route: 048
     Dates: start: 20090121, end: 20090121
  2. FLUOXETINE [Interacting]
     Indication: DRUG USE FOR UNKNOWN INDICATION
     Dosage: OVERDOSE, 5 TABLETS 1 PER TOTAL
     Route: 048
     Dates: start: 20090121, end: 20090121
  3. ETHANOL [Interacting]
     Indication: DRUG USE FOR UNKNOWN INDICATION
     Dosage: 0.5 LITRE PER TOTAL
     Route: 048
     Dates: start: 20090121, end: 20090121

REACTIONS (5)
  - ALCOHOL INTERACTION [None]
  - COMA [None]
  - INTENTIONAL OVERDOSE [None]
  - POTENTIATING DRUG INTERACTION [None]
  - SUICIDE ATTEMPT [None]
